FAERS Safety Report 9372881 (Version 1)
Quarter: 2013Q2

REPORT INFORMATION
  Report Type: Spontaneous
  Country: DE (occurrence: DE)
  Receive Date: 20130627
  Receipt Date: 20130627
  Transmission Date: 20140414
  Serious: Yes (Other)
  Sender: FDA-Public Use
  Company Number: PHHY2013DE065985

PATIENT
  Sex: Male

DRUGS (2)
  1. TEGRETOL RETARD [Suspect]
     Indication: EPILEPSY
     Dosage: 400 MG, UNK
     Route: 048
  2. KEPPRA [Concomitant]
     Dosage: UNK UKN, UNK

REACTIONS (4)
  - Brain neoplasm [Not Recovered/Not Resolved]
  - Terminal state [Not Recovered/Not Resolved]
  - Dysphagia [Not Recovered/Not Resolved]
  - Wrong technique in drug usage process [Unknown]
